FAERS Safety Report 6111298-6 (Version None)
Quarter: 2009Q1

REPORT INFORMATION
  Report Type: 
  Country: None (occurrence: None)
  Receive Date: 20090310
  Receipt Date: 20090310
  Transmission Date: 20090719
  Serious: Yes (Other)
  Sender: FDA-Public Use
  Company Number: None

PATIENT
  Age: 29 Year
  Sex: Female
  Weight: 71.6683 kg

DRUGS (3)
  1. OXCABAMAZEPINE UNKNOWN [Suspect]
     Indication: COMPLEX PARTIAL SEIZURES
     Dosage: 450 MG BID PO
     Route: 048
     Dates: start: 20081115, end: 20090309
  2. OXCABAMAZEPINE UNKNOWN [Suspect]
     Indication: CONVULSION
     Dosage: 450 MG BID PO
     Route: 048
     Dates: start: 20081115, end: 20090309
  3. GENERIC TRILEPTAL [Concomitant]

REACTIONS (5)
  - ANTICONVULSANT DRUG LEVEL DECREASED [None]
  - DRUG EXPOSURE DURING PREGNANCY [None]
  - GRAND MAL CONVULSION [None]
  - PREGNANCY [None]
  - THERAPEUTIC RESPONSE UNEXPECTED WITH DRUG SUBSTITUTION [None]
